FAERS Safety Report 24021950 (Version 4)
Quarter: 2024Q3

REPORT INFORMATION
  Report Type: Report from Study
  Country: US (occurrence: US)
  Receive Date: 20240627
  Receipt Date: 20240710
  Transmission Date: 20241017
  Serious: No
  Sender: ROCHE
  Company Number: US-ROCHE-3499188

PATIENT
  Age: 79 Year
  Sex: Male

DRUGS (18)
  1. FARICIMAB [Suspect]
     Active Substance: FARICIMAB
     Indication: Neovascular age-related macular degeneration
     Dosage: ON 16/MAY/2022, 05/JAN/2024, TOOK THE MOST RECENT DOSE (6 MG) OF FARICIMAB.
     Route: 050
     Dates: start: 20220504
  2. ASPIRIN [Concomitant]
     Active Substance: ASPIRIN
     Route: 048
     Dates: start: 2003
  3. LANTUS [Concomitant]
     Active Substance: INSULIN GLARGINE
     Route: 058
     Dates: start: 2021
  4. LEVOTHYROXINE SODIUM [Concomitant]
     Active Substance: LEVOTHYROXINE SODIUM
     Route: 048
     Dates: start: 2008
  5. METOPROLOL TARTRATE [Concomitant]
     Active Substance: METOPROLOL TARTRATE
     Route: 048
     Dates: start: 2010
  6. LOSARTAN POTASSIUM [Concomitant]
     Active Substance: LOSARTAN POTASSIUM
     Route: 048
     Dates: start: 2021
  7. HYDROCHLOROTHIAZIDE [Concomitant]
     Active Substance: HYDROCHLOROTHIAZIDE
     Route: 048
     Dates: start: 2010
  8. ROSUVASTATIN [Concomitant]
     Active Substance: ROSUVASTATIN
     Route: 048
     Dates: start: 2010
  9. NITROGLYCERIN [Concomitant]
     Active Substance: NITROGLYCERIN
     Route: 048
     Dates: start: 2011
  10. VITAMIN D3 [Concomitant]
     Active Substance: CHOLECALCIFEROL
     Dates: start: 2008
  11. CLARITIN [Concomitant]
     Active Substance: LORATADINE
     Dates: start: 2020
  12. AMLODIPINE [Concomitant]
     Active Substance: AMLODIPINE BESYLATE
     Route: 048
     Dates: start: 2011
  13. OXYBUTYNIN [Concomitant]
     Active Substance: OXYBUTYNIN\OXYBUTYNIN CHLORIDE
     Route: 048
     Dates: start: 2020
  14. CELECOXIB [Concomitant]
     Active Substance: CELECOXIB
     Route: 048
     Dates: start: 2013
  15. PREDNISOLONE [Concomitant]
     Active Substance: PREDNISOLONE
     Route: 047
     Dates: start: 20240125
  16. PREDNISOLONE [Concomitant]
     Active Substance: PREDNISOLONE
     Route: 047
     Dates: start: 20240125
  17. TOBRAMYCIN [Concomitant]
     Active Substance: TOBRAMYCIN\TOBRAMYCIN SULFATE
     Route: 047
     Dates: start: 20240125
  18. TOBRAMYCIN [Concomitant]
     Active Substance: TOBRAMYCIN\TOBRAMYCIN SULFATE
     Route: 047
     Dates: start: 20240125

REACTIONS (1)
  - Retinal haemorrhage [Recovering/Resolving]

NARRATIVE: CASE EVENT DATE: 20240120
